FAERS Safety Report 8943790 (Version 1)
Quarter: 2012Q4

REPORT INFORMATION
  Report Type: 
  Country: IT (occurrence: IT)
  Receive Date: 20121203
  Receipt Date: 20121203
  Transmission Date: 20130627
  Serious: Yes (Hospitalization)
  Sender: FDA-Public Use
  Company Number: IT-GLAXOSMITHKLINE-B0849004A

PATIENT
  Age: 32 Year
  Sex: Female

DRUGS (4)
  1. LAMICTAL [Suspect]
     Indication: PETIT MAL EPILEPSY
     Dosage: 50MG per day
     Route: 048
     Dates: start: 20121112, end: 20121112
  2. FRISIUM [Suspect]
     Indication: ANXIETY
     Dosage: 20MG per day
     Route: 048
     Dates: start: 20121112, end: 20121112
  3. OXCARBAZEPINE [Suspect]
     Indication: PETIT MAL EPILEPSY
     Dosage: 600MG per day
     Route: 048
     Dates: start: 20121112, end: 20121112
  4. VIMPAT [Suspect]
     Indication: PETIT MAL EPILEPSY
     Dosage: 200MG per day
     Route: 048
     Dates: start: 20121112, end: 20121112

REACTIONS (2)
  - Agitation [Recovered/Resolved with Sequelae]
  - Overdose [Recovered/Resolved with Sequelae]
